FAERS Safety Report 16048045 (Version 2)
Quarter: 2019Q2

REPORT INFORMATION
  Report Type: Spontaneous
  Country: BE (occurrence: BE)
  Receive Date: 20190307
  Receipt Date: 20190522
  Transmission Date: 20190711
  Serious: Yes (Other)
  Sender: FDA-Public Use
  Company Number: BE-PFIZER INC-2019088511

PATIENT
  Age: 82 Year
  Sex: Female
  Weight: 74 kg

DRUGS (6)
  1. ASAFLOW [Concomitant]
     Active Substance: ASPIRIN
     Dosage: 80 MG, 1X/DAY
  2. VISTA D3 [Concomitant]
     Dosage: 1000 MG, 1X/DAY
  3. TOTALIP [Suspect]
     Active Substance: ATORVASTATIN
     Indication: TYPE IIA HYPERLIPIDAEMIA
     Dosage: 40 MG, 1X/DAY
     Route: 048
     Dates: start: 2015, end: 20180608
  4. L-THYROXINE [LEVOTHYROXINE] [Concomitant]
     Active Substance: LEVOTHYROXINE
     Indication: HYPOTHYROIDISM
     Dosage: 125 MG, 1X/DAY
     Dates: start: 1986
  5. TETRABENAZINE AOP [Concomitant]
     Dosage: 25 MG, 2X/DAY
  6. BIOCONDIL [CHONDROITIN SULFATE;GLUCOSAMINE HYDROCHLORIDE] [Concomitant]
     Indication: PROPHYLAXIS
     Dosage: 2 DF, 1X/DAY

REACTIONS (5)
  - Musculoskeletal stiffness [Recovered/Resolved]
  - Pain [Recovered/Resolved]
  - Muscle spasms [Recovered/Resolved]
  - Mobility decreased [Recovered/Resolved]
  - Monoplegia [Recovered/Resolved]

NARRATIVE: CASE EVENT DATE: 201803
